FAERS Safety Report 4679684-9 (Version None)
Quarter: 2005Q2

REPORT INFORMATION
  Report Type: 
  Country: None (occurrence: None)
  Receive Date: 20050602
  Receipt Date: 20050525
  Transmission Date: 20051028
  Serious: Yes (Hospitalization)
  Sender: FDA-Public Use
  Company Number: US-KINGPHARMUSA00001-K200500695

PATIENT
  Age: 99 Year
  Sex: Female

DRUGS (8)
  1. ALTACE [Suspect]
     Indication: ESSENTIAL HYPERTENSION
     Dosage: 10 MG, QD
     Route: 048
  2. DAPA-TABS [Suspect]
     Indication: ESSENTIAL HYPERTENSION
     Dosage: 2 MG, QD
     Route: 048
     Dates: end: 20050121
  3. SOMAC [Suspect]
     Dosage: 40 MG, QD
  4. ACTONEL [Concomitant]
     Indication: OSTEOPOROSIS
     Dosage: 35 MG, QW
  5. ASTRIX [Concomitant]
     Dosage: 100 MG, UNK
  6. CALTRATE [Concomitant]
     Indication: OSTEOPOROSIS
     Dosage: 600 MG, UNK
  7. FOLIC ACID [Concomitant]
     Dosage: 5 MG, UNK
  8. LARGACTIL [Concomitant]
     Dosage: 50 MG, UNK

REACTIONS (2)
  - HYPOKALAEMIA [None]
  - HYPONATRAEMIA [None]
